FAERS Safety Report 5500433-6 (Version None)
Quarter: 2007Q4

REPORT INFORMATION
  Report Type: 
  Country: None (occurrence: None)
  Receive Date: 20071025
  Receipt Date: 20071014
  Transmission Date: 20080405
  Serious: Yes (Other)
  Sender: FDA-Public Use
  Company Number: 019534

PATIENT
  Age: 18 Year
  Sex: Female
  Weight: 51.7 kg

DRUGS (1)
  1. PLAN B [Suspect]
     Indication: CONTRACEPTION
     Dosage: 1 TABLET, ORAL
     Route: 048
     Dates: start: 20071013, end: 20071014

REACTIONS (3)
  - DIZZINESS [None]
  - HAEMATEMESIS [None]
  - PELVIC PAIN [None]
